FAERS Safety Report 6730184-1 (Version None)
Quarter: 2010Q2

REPORT INFORMATION
  Report Type: 
  Country: None (occurrence: None)
  Receive Date: 20100518
  Receipt Date: 20100517
  Transmission Date: 20101027
  Serious: Yes (Other)
  Sender: FDA-Public Use
  Company Number: FR-SANOFI-AVENTIS-2010SA004263

PATIENT
  Age: 53 Year
  Sex: Male

DRUGS (6)
  1. ENOXAPARIN SODIUM [Suspect]
     Indication: PULMONARY EMBOLISM
     Route: 058
     Dates: start: 20100107, end: 20100126
  2. WARFARIN SODIUM [Suspect]
     Indication: PULMONARY EMBOLISM
     Route: 048
     Dates: start: 20100107, end: 20100112
  3. WARFARIN SODIUM [Suspect]
     Route: 048
     Dates: start: 20100118, end: 20100120
  4. PARACETAMOL [Concomitant]
     Indication: PAIN
     Route: 048
     Dates: start: 20100107, end: 20100111
  5. PREVISCAN [Concomitant]
     Indication: PULMONARY EMBOLISM
     Route: 048
     Dates: start: 20100113, end: 20100117
  6. PREVISCAN [Concomitant]
     Route: 048
     Dates: start: 20100121

REACTIONS (1)
  - HEPATIC ENZYME INCREASED [None]
